FAERS Safety Report 25818067 (Version 1)
Quarter: 2025Q3

REPORT INFORMATION
  Report Type: Spontaneous
  Country: EU (occurrence: EU)
  Receive Date: 20250918
  Receipt Date: 20250918
  Transmission Date: 20251020
  Serious: Yes (Other)
  Sender: PFIZER
  Company Number: EU-MYLANLABS-2025M1076634

PATIENT
  Age: 30 Year
  Sex: Male

DRUGS (4)
  1. LORAZEPAM [Interacting]
     Active Substance: LORAZEPAM
  2. CLOZAPINE [Interacting]
     Active Substance: CLOZAPINE
     Indication: Product used for unknown indication
  3. FLUVOXAMINE [Interacting]
     Active Substance: FLUVOXAMINE
  4. HALOPERIDOL [Interacting]
     Active Substance: HALOPERIDOL

REACTIONS (2)
  - Drug interaction [Unknown]
  - Toxicity to various agents [Unknown]
